FAERS Safety Report 13656945 (Version 5)
Quarter: 2017Q3

REPORT INFORMATION
  Report Type: Spontaneous
  Country: US (occurrence: US)
  Receive Date: 20170615
  Receipt Date: 20170811
  Transmission Date: 20171127
  Serious: Yes (Hospitalization, Other)
  Sender: FDA-Public Use
  Company Number: US-ALEXION PHARMACEUTICALS INC.-A201706486

PATIENT
  Age: 30 Year
  Sex: Female

DRUGS (4)
  1. SOLIRIS [Suspect]
     Active Substance: ECULIZUMAB
     Dosage: 1200 MG, UNK
     Route: 042
     Dates: start: 20160813, end: 20170616
  2. SOLIRIS [Suspect]
     Active Substance: ECULIZUMAB
     Indication: HAEMOLYTIC URAEMIC SYNDROME
     Dosage: 900 MG, QW
     Route: 042
     Dates: start: 20160813
  3. SOLIRIS [Suspect]
     Active Substance: ECULIZUMAB
     Dosage: 1200 MG, UNK
     Route: 042
     Dates: end: 20161019
  4. SOLIRIS [Suspect]
     Active Substance: ECULIZUMAB
     Dosage: UNK
     Route: 042
     Dates: start: 20170610

REACTIONS (16)
  - Blood lactate dehydrogenase abnormal [Unknown]
  - Red blood cell schistocytes present [Unknown]
  - Vomiting [Unknown]
  - Glomerular filtration rate abnormal [Unknown]
  - Haematocrit abnormal [Unknown]
  - Haemoglobin abnormal [Unknown]
  - Blood creatinine abnormal [Unknown]
  - Platelet count abnormal [Unknown]
  - Blood bilirubin abnormal [Unknown]
  - Visual impairment [Unknown]
  - Nausea [Unknown]
  - Hypertension [Not Recovered/Not Resolved]
  - Renal failure [Not Recovered/Not Resolved]
  - Haptoglobin abnormal [Unknown]
  - Diarrhoea [Unknown]
  - Blood urea abnormal [Unknown]

NARRATIVE: CASE EVENT DATE: 20170502
